FAERS Safety Report 10269902 (Version 1)
Quarter: 2014Q2

REPORT INFORMATION
  Report Type: Spontaneous
  Country: US (occurrence: None)
  Receive Date: 20140626
  Receipt Date: 20140626
  Transmission Date: 20141212
  Serious: Yes (Disabling)
  Sender: FDA-Public Use
  Company Number: None

PATIENT
  Age: 86 Year
  Sex: Male
  Weight: 73.03 kg

DRUGS (12)
  1. CIPROFLOXACIN [Suspect]
     Indication: GASTROINTESTINAL DISORDER
     Dosage: 2 PILLS DAILY, TWICE DAILY, BY MOUTH
     Route: 048
     Dates: start: 20140501, end: 20140501
  2. WARFARIN [Concomitant]
  3. CARBIDOPA/LEVIDOPA [Concomitant]
  4. CHOLOESTERMINE [Concomitant]
  5. FINASTERIDE [Concomitant]
  6. VESICARE [Concomitant]
  7. SULFASALAZINE [Concomitant]
  8. SOTALOL [Concomitant]
  9. POTASSIUM [Concomitant]
  10. CALCIUM CITRATE [Concomitant]
  11. VITAMIN D [Concomitant]
  12. VITAMIN B [Concomitant]

REACTIONS (4)
  - Stevens-Johnson syndrome [None]
  - Peripheral swelling [None]
  - Peripheral swelling [None]
  - Peripheral swelling [None]
